FAERS Safety Report 20995482 (Version 1)
Quarter: 2022Q2

REPORT INFORMATION
  Report Type: Spontaneous
  Country: ES (occurrence: ES)
  Receive Date: 20220622
  Receipt Date: 20220622
  Transmission Date: 20220721
  Serious: Yes (Hospitalization)
  Sender: FDA-Public Use
  Company Number: ES-BEIGENE AUS PTY LTD-BGN-2022-005483

PATIENT
  Age: 74 Year
  Sex: Male
  Weight: 66 kg

DRUGS (4)
  1. AZACITIDINE [Suspect]
     Active Substance: AZACITIDINE
     Indication: Acute myeloid leukaemia
     Route: 042
     Dates: start: 20220330
  2. AZACITIDINE [Suspect]
     Active Substance: AZACITIDINE
     Route: 042
     Dates: start: 20220509
  3. BGB-11417 [Suspect]
     Active Substance: BGB-11417
     Indication: Acute myeloid leukaemia
     Route: 048
     Dates: start: 20220330
  4. BGB-11417 [Suspect]
     Active Substance: BGB-11417
     Route: 048
     Dates: start: 20220503

REACTIONS (1)
  - Anorectal infection [Not Recovered/Not Resolved]

NARRATIVE: CASE EVENT DATE: 20220514
